FAERS Safety Report 13879045 (Version 1)
Quarter: 2017Q3

REPORT INFORMATION
  Report Type: Spontaneous
  Country: US (occurrence: US)
  Receive Date: 20170817
  Receipt Date: 20170817
  Transmission Date: 20171127
  Serious: No
  Sender: FDA-Public Use
  Company Number: US-PFIZER INC-2016604628

PATIENT
  Age: 7 Year
  Sex: Male

DRUGS (7)
  1. BACTROBAN [Concomitant]
     Active Substance: MUPIROCIN\MUPIROCIN CALCIUM
     Dosage: UNK UNK, 2X/DAY (APPLY TOPICALLY)
     Route: 061
  2. GENOTROPIN [Suspect]
     Active Substance: SOMATROPIN
     Indication: BODY HEIGHT BELOW NORMAL
     Dosage: 0.8 MG, DAILY
     Route: 058
  3. GENOTROPIN [Suspect]
     Active Substance: SOMATROPIN
     Dosage: 0.9 MG, 1X/DAY
     Route: 058
  4. GENOTROPIN [Suspect]
     Active Substance: SOMATROPIN
     Dosage: 0.9 MG, DAILY
  5. GENOTROPIN [Suspect]
     Active Substance: SOMATROPIN
     Dosage: 0.9 MG, DAILY (7 DAYS PER WEEK)
     Dates: start: 201606, end: 201705
  6. PROVENTIL HFA [Concomitant]
     Active Substance: ALBUTEROL SULFATE
     Indication: WHEEZING
     Dosage: UNK UNK, AS NEEDED [90 MCG/ ACTUATION INHALATION INHALER, PUFFS BY INHALATION ROUTE EVERY 4 HOURS ]
     Route: 055
  7. VENTOLIN HFA [Concomitant]
     Active Substance: ALBUTEROL SULFATE
     Indication: WHEEZING
     Dosage: UNK UNK, AS NEEDED [90 MCG/ ACTUATION INHALATION INHALER,2 PUFFS BY INHALATION ROUTE EVERY 4 HOURS]
     Route: 055

REACTIONS (10)
  - Drug ineffective [Unknown]
  - Drug dose omission [Unknown]
  - Contusion [Unknown]
  - Increased appetite [Unknown]
  - Weight increased [Unknown]
  - Eye pain [Unknown]
  - Myalgia [Unknown]
  - Infection [Unknown]
  - Lymphadenopathy [Unknown]
  - Headache [Unknown]
